FAERS Safety Report 18028493 (Version 2)
Quarter: 2024Q2

REPORT INFORMATION
  Report Type: Spontaneous
  Country: US (occurrence: US)
  Receive Date: 20200716
  Receipt Date: 20240506
  Transmission Date: 20240716
  Serious: No
  Sender: FDA-Public Use
  Company Number: US-BIOGEN-2020BI00897128

PATIENT
  Sex: Male

DRUGS (1)
  1. SPINRAZA [Suspect]
     Active Substance: NUSINERSEN
     Indication: Spinal muscular atrophy
     Route: 050

REACTIONS (4)
  - Muscular weakness [Unknown]
  - Fatigue [Recovered/Resolved]
  - Muscle rigidity [Unknown]
  - Grip strength decreased [Recovered/Resolved]

NARRATIVE: CASE EVENT DATE: 20190101
